FAERS Safety Report 5418639-3 (Version None)
Quarter: 2007Q3

REPORT INFORMATION
  Report Type: 
  Country: None (occurrence: None)
  Receive Date: 20070817
  Receipt Date: 20070806
  Transmission Date: 20080115
  Serious: Yes (Hospitalization, Other)
  Sender: FDA-Public Use
  Company Number: DE-PFIZER INC-2007059267

PATIENT
  Sex: Male

DRUGS (13)
  1. SU-011,248 [Suspect]
     Indication: METASTATIC RENAL CELL CARCINOMA
     Dosage: DAILY DOSE:50MG
     Route: 048
     Dates: start: 20070321, end: 20070704
  2. NOVALGIN [Suspect]
  3. ARCOXIA [Concomitant]
     Dates: start: 20070517, end: 20070601
  4. OXYCODAN [Concomitant]
     Dates: start: 20070517, end: 20070601
  5. METOCLOPRAMIDE [Concomitant]
     Dates: start: 20070517, end: 20070601
  6. SEVREDOL [Concomitant]
  7. PANTOPRAZOL [Concomitant]
     Dates: start: 20070704, end: 20070724
  8. DELIX PLUS [Concomitant]
  9. PARACETAMOL [Concomitant]
     Dates: start: 20070704, end: 20070725
  10. MORPHINE SULFATE [Concomitant]
     Dates: start: 20070704, end: 20070730
  11. MACROGOL [Concomitant]
     Dates: start: 20070704, end: 20070725
  12. ARIXTRA [Concomitant]
  13. DIPYRONE TAB [Concomitant]
     Dates: start: 20070601, end: 20070704

REACTIONS (4)
  - LEUKOPENIA [None]
  - PNEUMONIA [None]
  - PNEUMOTHORAX [None]
  - THROMBOCYTOPENIA [None]
